FAERS Safety Report 8803223 (Version 2)
Quarter: 2015Q1

REPORT INFORMATION
  Report Type: Report from Study
  Country: US (occurrence: US)
  Receive Date: 20120924
  Receipt Date: 20150304
  Transmission Date: 20150721
  Serious: Yes (Other)
  Sender: FDA-Public Use
  Company Number: US-ROCHE-1093941

PATIENT
  Sex: Female
  Weight: 69 kg

DRUGS (12)
  1. XELODA [Suspect]
     Active Substance: CAPECITABINE
     Indication: METASTASES TO LIVER
  2. DECADRON [Concomitant]
     Active Substance: DEXAMETHASONE
     Route: 042
  3. OPIUM TINCTURE [Concomitant]
     Active Substance: OPIUM TINCTURE
     Dosage: AS REQUIRED
     Route: 065
  4. XELODA [Suspect]
     Active Substance: CAPECITABINE
     Indication: RECTAL CANCER
     Dosage: MONDAY TO FRIDAY
     Route: 048
     Dates: start: 20040209
  5. ZOFRAN [Concomitant]
     Active Substance: ONDANSETRON HYDROCHLORIDE
     Indication: NAUSEA
     Dosage: TAKE 1 EVERY 6 HOURS, PRN
     Route: 048
  6. AVASTIN [Suspect]
     Active Substance: BEVACIZUMAB
     Indication: RECTOSIGMOID CANCER
     Route: 042
     Dates: start: 20040707
  7. ATIVAN [Concomitant]
     Active Substance: LORAZEPAM
     Dosage: 1 EVERY 8 HOURS, PM
     Route: 048
  8. ARANESP [Concomitant]
     Active Substance: DARBEPOETIN ALFA
     Route: 042
  9. ALOXI [Concomitant]
     Active Substance: PALONOSETRON HYDROCHLORIDE
     Indication: NAUSEA
     Route: 042
  10. XELODA [Suspect]
     Active Substance: CAPECITABINE
     Indication: METASTASES TO LUNG
  11. IRINOTECAN [Concomitant]
     Active Substance: IRINOTECAN
  12. PROTONIX (UNITED STATES) [Concomitant]
     Route: 048

REACTIONS (16)
  - Anaemia [Unknown]
  - Fatigue [Unknown]
  - Nausea [Unknown]
  - Vomiting [Unknown]
  - Abdominal pain [Recovering/Resolving]
  - Dehydration [Unknown]
  - Anxiety [Unknown]
  - Abdominal pain upper [Unknown]
  - Asthenia [Unknown]
  - Chills [Unknown]
  - Diarrhoea [Unknown]
  - Dizziness [Unknown]
  - Disease progression [Unknown]
  - Tremor [Unknown]
  - Constipation [Unknown]
  - Decreased appetite [Unknown]
